FAERS Safety Report 25185595 (Version 1)
Quarter: 2025Q2

REPORT INFORMATION
  Report Type: Spontaneous
  Country: US (occurrence: US)
  Receive Date: 20250410
  Receipt Date: 20250410
  Transmission Date: 20250717
  Serious: No
  Sender: HISAMITSU PHARM
  Company Number: US-HISAMITSU-2024-US-056469

PATIENT
  Sex: Female

DRUGS (1)
  1. SALONPAS ARTHRITIS PAIN [Suspect]
     Active Substance: MENTHOL\METHYL SALICYLATE
     Indication: Product used for unknown indication
     Route: 061

REACTIONS (2)
  - Application site rash [Recovering/Resolving]
  - Application site pruritus [Recovering/Resolving]
